FAERS Safety Report 22340038 (Version 1)
Quarter: 2023Q2

REPORT INFORMATION
  Report Type: Spontaneous
  Country: CN (occurrence: CN)
  Receive Date: 20230518
  Receipt Date: 20230518
  Transmission Date: 20230721
  Serious: Yes (Life-Threatening, Other)
  Sender: FDA-Public Use
  Company Number: CN-ELI_LILLY_AND_COMPANY-CN202305008922

PATIENT
  Sex: Male
  Weight: 65 kg

DRUGS (2)
  1. HUMULIN 70/30 [Suspect]
     Active Substance: INSULIN HUMAN
     Indication: Diabetes mellitus
     Dosage: 10 INTERNATIONAL UNIT
     Route: 058
     Dates: start: 20230104, end: 20230422
  2. INSULIN ASPART [Suspect]
     Active Substance: INSULIN ASPART
     Indication: Diabetes mellitus
     Dosage: 10 INTERNATIONAL UNIT, TID
     Route: 058
     Dates: start: 20230104, end: 20230422

REACTIONS (2)
  - Hypoglycaemic unconsciousness [Recovered/Resolved]
  - Blood pressure increased [Recovered/Resolved]
